APPROVED DRUG PRODUCT: DEXTROSE 5% AND LACTATED RINGER'S
Active Ingredient: CALCIUM CHLORIDE; DEXTROSE; POTASSIUM CHLORIDE; SODIUM CHLORIDE; SODIUM LACTATE
Strength: 20MG/100ML;5GM/100ML;30MG/100ML;600MG/100ML;310MG/100ML
Dosage Form/Route: INJECTABLE;INJECTION
Application: A210332 | Product #001
Applicant: FRESENIUS KABI USA LLC
Approved: Mar 28, 2022 | RLD: No | RS: No | Type: DISCN